FAERS Safety Report 9625508 (Version 1)
Quarter: 2013Q4

REPORT INFORMATION
  Report Type: Spontaneous
  Country: US (occurrence: None)
  Receive Date: 20131015
  Receipt Date: 20131015
  Transmission Date: 20140711
  Serious: Yes (Life-Threatening, Hospitalization, Disabling)
  Sender: FDA-Public Use
  Company Number: None

PATIENT
  Age: 63 Year
  Sex: Male
  Weight: 68 kg

DRUGS (1)
  1. ACTIVASE [Suspect]
     Indication: THROMBOLYSIS
     Route: 042
     Dates: start: 20131023, end: 20131024

REACTIONS (2)
  - Cerebellar haematoma [None]
  - Cerebral haematoma [None]
